FAERS Safety Report 7177074-0 (Version None)
Quarter: 2010Q4

REPORT INFORMATION
  Report Type: 
  Country: None (occurrence: None)
  Receive Date: 20101207
  Receipt Date: 20101111
  Transmission Date: 20110411
  Serious: Yes (Death)
  Sender: FDA-Public Use
  Company Number: 2010IP000144

PATIENT
  Age: 76 Year
  Sex: Female

DRUGS (6)
  1. BROMFENAC SODIUM [Suspect]
     Indication: CATARACT OPERATION COMPLICATION
     Dosage: 1 GTT;BID;OPH
     Route: 047
     Dates: start: 20100614, end: 20100725
  2. MOXIFLOXACIN HCL [Concomitant]
  3. BETAMETHASONE SODIUM PHOSPHATE [Concomitant]
  4. FLOMOX (CEFCAPENE PIVOXIL HYDROCHLORIDE HYDRATE) [Concomitant]
  5. PARIET (SODIUM RABEPRAZOLE) [Concomitant]
  6. FERROMIA (SODIUM FERROUS CITRATE) [Concomitant]

REACTIONS (6)
  - ABDOMINAL PAIN LOWER [None]
  - CARDIAC ARREST [None]
  - MOUTH BREATHING [None]
  - NAUSEA [None]
  - PYREXIA [None]
  - VOMITING [None]
